FAERS Safety Report 4478698-1 (Version None)
Quarter: 2004Q3

REPORT INFORMATION
  Report Type: 
  Country: None (occurrence: None)
  Receive Date: 20040923
  Receipt Date: 20040603
  Transmission Date: 20050211
  Serious: No
  Sender: FDA-Public Use
  Company Number: USA040669234

PATIENT
  Age: 79 Year
  Sex: Female

DRUGS (3)
  1. FORTEO [Suspect]
     Indication: OSTEOPOROSIS
     Dosage: 20 UG DAY
     Dates: start: 20030301
  2. ACYCLOVIR [Concomitant]
  3. OCUVITE [Concomitant]

REACTIONS (2)
  - BONE DENSITY DECREASED [None]
  - INJECTION SITE HAEMORRHAGE [None]
